FAERS Safety Report 8501217-7 (Version None)
Quarter: 2012Q3

REPORT INFORMATION
  Report Type: 
  Country: None (occurrence: None)
  Receive Date: 20120710
  Receipt Date: 20120625
  Transmission Date: 20120928
  Serious: Yes (Hospitalization)
  Sender: FDA-Public Use
  Company Number: BE-WATSON-2012-11323

PATIENT
  Age: 26 Year
  Sex: Female

DRUGS (4)
  1. ACYCLOVIR [Suspect]
     Indication: ENCEPHALITIS
     Dosage: UNK
     Route: 065
  2. AMPICILLIN [Suspect]
     Dosage: UNK
     Route: 065
  3. CEFTRIAXONE SODIUM [Suspect]
     Indication: ENCEPHALITIS
     Dosage: UNK
     Route: 065
  4. DOXYCYCLINE [Suspect]
     Indication: ENCEPHALITIS
     Dosage: UNK
     Route: 065

REACTIONS (1)
  - JARISCH-HERXHEIMER REACTION [None]
